FAERS Safety Report 4751578-X (Version None)
Quarter: 2005Q3

REPORT INFORMATION
  Report Type: 
  Country: None (occurrence: None)
  Receive Date: 20050824
  Receipt Date: 20050812
  Transmission Date: 20060218
  Serious: Yes (Other)
  Sender: FDA-Public Use
  Company Number: JP-GLAXOSMITHKLINE-B0390611A

PATIENT
  Age: 47 Year
  Sex: Male

DRUGS (7)
  1. EPIVIR [Suspect]
     Indication: HIV INFECTION
     Route: 048
     Dates: start: 20010912
  2. RETROVIR [Suspect]
     Indication: HIV INFECTION
     Dosage: 400MG PER DAY
     Route: 048
     Dates: start: 20010912, end: 20041207
  3. STOCRIN [Suspect]
     Indication: HIV INFECTION
     Dosage: 600MG PER DAY
     Route: 048
     Dates: start: 20020807
  4. LIPANTIL [Concomitant]
     Dosage: 300MG PER DAY
     Route: 048
     Dates: start: 20040401
  5. UNASYN [Concomitant]
     Indication: PHARYNGITIS
     Dosage: 375MG TWICE PER DAY
     Route: 048
     Dates: start: 20040811, end: 20040818
  6. LOXONIN [Concomitant]
     Indication: PHARYNGITIS
     Dosage: 60MG THREE TIMES PER DAY
     Route: 048
     Dates: start: 20040811, end: 20040818
  7. MUCOSTA [Concomitant]
     Indication: GASTRITIS
     Dosage: 100MG THREE TIMES PER DAY
     Route: 048
     Dates: start: 20041208, end: 20050201

REACTIONS (3)
  - PYREXIA [None]
  - VENOUS THROMBOSIS [None]
  - VENOUS THROMBOSIS LIMB [None]
